FAERS Safety Report 7500909-6 (Version None)
Quarter: 2011Q2

REPORT INFORMATION
  Report Type: 
  Country: None (occurrence: None)
  Receive Date: 20110524
  Receipt Date: 20110518
  Transmission Date: 20111010
  Serious: Yes (Life-Threatening)
  Sender: FDA-Public Use
  Company Number: US-ASTRAZENECA-2011SE30386

PATIENT
  Sex: Female

DRUGS (2)
  1. SYMBICORT [Suspect]
     Route: 055
  2. NEXIUM [Suspect]
     Route: 048

REACTIONS (7)
  - AUTOIMMUNE DISORDER [None]
  - PNEUMONIA VIRAL [None]
  - CHRONIC FATIGUE SYNDROME [None]
  - ANAEMIA [None]
  - OSTEOARTHRITIS [None]
  - APPARENT DEATH [None]
  - RESTLESS LEGS SYNDROME [None]
